FAERS Safety Report 9717803 (Version 1)
Quarter: 2013Q4

REPORT INFORMATION
  Report Type: Spontaneous
  Country: ES (occurrence: ES)
  Receive Date: 20131127
  Receipt Date: 20131127
  Transmission Date: 20140711
  Serious: Yes (Hospitalization)
  Sender: FDA-Public Use
  Company Number: ES-ABBVIE-13P-144-1171107-00

PATIENT
  Age: 32 Year
  Sex: Female

DRUGS (5)
  1. PROCRIN 1MG/0.2 ML [Suspect]
     Indication: IN VITRO FERTILISATION
     Dates: start: 2013, end: 2013
  2. GONAL-F [Interacting]
     Indication: IN VITRO FERTILISATION
     Dates: start: 2013, end: 2013
  3. GONAL-F [Interacting]
     Indication: IN VITRO FERTILISATION
     Dates: start: 2013, end: 2013
  4. MENOPUR [Interacting]
     Indication: IN VITRO FERTILISATION
     Dates: start: 2013, end: 2013
  5. OVITRELLE [Interacting]
     Indication: IN VITRO FERTILISATION
     Dates: start: 2013, end: 2013

REACTIONS (2)
  - Ascites [Recovered/Resolved]
  - Ovarian hyperstimulation syndrome [Recovered/Resolved]
